FAERS Safety Report 7964021-4 (Version None)
Quarter: 2011Q4

REPORT INFORMATION
  Report Type: 
  Country: None (occurrence: None)
  Receive Date: 20111206
  Receipt Date: 20111122
  Transmission Date: 20120403
  Serious: Yes (Other)
  Sender: FDA-Public Use
  Company Number: 1000025239

PATIENT
  Age: 38 Year
  Sex: Female
  Weight: 39 kg

DRUGS (1)
  1. LEXAPRO [Suspect]
     Indication: PANIC DISORDER
     Dosage: 10 MG (10 MG, 1 IN 1 D)
     Dates: start: 20111003

REACTIONS (7)
  - LOSS OF CONSCIOUSNESS [None]
  - NAUSEA [None]
  - HYPERVENTILATION [None]
  - INSOMNIA [None]
  - PALPITATIONS [None]
  - MUSCLE CONTRACTURE [None]
  - HYPOAESTHESIA [None]
